FAERS Safety Report 21797823 (Version 14)
Quarter: 2024Q1

REPORT INFORMATION
  Report Type: Spontaneous
  Country: US (occurrence: US)
  Receive Date: 20221230
  Receipt Date: 20240311
  Transmission Date: 20240410
  Serious: No
  Sender: FDA-Public Use
  Company Number: US-GLAXOSMITHKLINE-US2022AMR193564

PATIENT
  Age: 48 Year
  Sex: Female

DRUGS (5)
  1. ZEJULA [Suspect]
     Active Substance: NIRAPARIB
     Indication: Ovarian cancer
     Dosage: 200 MG, QD
  2. ZEJULA [Suspect]
     Active Substance: NIRAPARIB
     Dosage: 100 MG, QD
  3. ZEJULA [Suspect]
     Active Substance: NIRAPARIB
     Indication: Ovarian cancer
     Dosage: 100 MG, QD
  4. LEVOTHYROXINE [Concomitant]
     Active Substance: LEVOTHYROXINE\LEVOTHYROXINE SODIUM
     Indication: Product used for unknown indication
     Dosage: 50 MCG/MG
  5. LEVOTHYROXINE [Concomitant]
     Active Substance: LEVOTHYROXINE\LEVOTHYROXINE SODIUM
     Dosage: 75 MCG/MG

REACTIONS (19)
  - Nausea [Not Recovered/Not Resolved]
  - Constipation [Unknown]
  - White blood cell count decreased [Not Recovered/Not Resolved]
  - Red blood cell count decreased [Not Recovered/Not Resolved]
  - Platelet count decreased [Not Recovered/Not Resolved]
  - Fatigue [Unknown]
  - Emotional disorder [Unknown]
  - Pain [Recovering/Resolving]
  - Arthralgia [Unknown]
  - Rash [Not Recovered/Not Resolved]
  - Drug intolerance [Unknown]
  - Hypersensitivity [Recovered/Resolved]
  - Urticaria [Not Recovered/Not Resolved]
  - Insomnia [Unknown]
  - Anxiety [Unknown]
  - Hepatic enzyme increased [Recovered/Resolved]
  - Fluid intake reduced [Unknown]
  - Photosensitivity reaction [Unknown]
  - Stress [Unknown]

NARRATIVE: CASE EVENT DATE: 20230401
